FAERS Safety Report 4878228-6 (Version None)
Quarter: 2006Q1

REPORT INFORMATION
  Report Type: 
  Country: None (occurrence: None)
  Receive Date: 20060111
  Receipt Date: 20051117
  Transmission Date: 20060701
  Serious: Yes (Hospitalization)
  Sender: FDA-Public Use
  Company Number: US-MERCK-0511USA03271

PATIENT
  Age: 76 Year
  Sex: Male
  Weight: 82 kg

DRUGS (4)
  1. VIOXX [Suspect]
     Indication: ARTHRITIS
     Route: 048
     Dates: start: 20030102
  2. DIOVAN [Concomitant]
     Route: 048
  3. VERAPAMIL [Concomitant]
     Route: 048
  4. TYLENOL W/ CODEINE NO. 3 [Concomitant]
     Route: 048

REACTIONS (2)
  - ANXIETY [None]
  - MYOCARDIAL INFARCTION [None]
